FAERS Safety Report 10432082 (Version 3)
Quarter: 2015Q2

REPORT INFORMATION
  Report Type: Report from Study
  Country: JP (occurrence: JP)
  Receive Date: 20140905
  Receipt Date: 20150626
  Transmission Date: 20150821
  Serious: Yes (Hospitalization)
  Sender: FDA-Public Use
  Company Number: JP-UCBSA-2014010560

PATIENT
  Age: 83 Year
  Sex: Female
  Weight: 42 kg

DRUGS (17)
  1. PROGRAF [Concomitant]
     Active Substance: TACROLIMUS\TACROLIMUS ANHYDROUS
     Dosage: DAILY DOSE 3MG
     Route: 048
  2. CERTOLIZUMAB PEGOL RA [Suspect]
     Active Substance: CERTOLIZUMAB PEGOL
     Indication: RHEUMATOID ARTHRITIS
     Dosage: 400 MG, EV 2 WEEKS(QOW) BIWEEKLY
     Route: 058
     Dates: start: 20130808, end: 20130905
  3. CERTOLIZUMAB PEGOL RA [Suspect]
     Active Substance: CERTOLIZUMAB PEGOL
     Dosage: 200 MG, EV 2 WEEKS(QOW) (BIWEEKLY)
     Route: 058
     Dates: start: 20131003, end: 20140612
  4. BASEN [Concomitant]
     Active Substance: VOGLIBOSE
     Dosage: 0.6 MG AT DAILY DOSE
     Route: 048
  5. IGURATIMOD [Concomitant]
     Active Substance: IGURATIMOD
     Dosage: DAILY DOSE 25MG
     Route: 048
     Dates: start: 20140220
  6. BAKTAR [Concomitant]
     Active Substance: SULFAMETHOXAZOLE\TRIMETHOPRIM
     Dosage: DAILY DOSE OF 2 DF
     Route: 048
  7. LIPITOR [Concomitant]
     Active Substance: ATORVASTATIN CALCIUM
     Dosage: 5 MG DAILY DOSE
     Route: 048
  8. ISCOTIN [Concomitant]
     Active Substance: ISONIAZID
     Dosage: 0.2 G DAILY DOSE
     Route: 048
  9. PARIET [Concomitant]
     Active Substance: RABEPRAZOLE SODIUM
     Dosage: DAILY DOSE 10MG
     Route: 048
  10. CELECOX [Concomitant]
     Active Substance: CELECOXIB
     Dosage: 200 MG AT DAILY DOSE
     Route: 048
     Dates: start: 20080307
  11. ZETIA [Concomitant]
     Active Substance: EZETIMIBE
     Dosage: 10 MG AT DAILY DOSE
     Route: 048
  12. PREDNISOLONE. [Concomitant]
     Active Substance: PREDNISOLONE
     Dosage: DAILY DOSE 6 MG
     Route: 048
     Dates: start: 20131003, end: 20131030
  13. PREDNISOLONE. [Concomitant]
     Active Substance: PREDNISOLONE
     Dosage: DALIY DOSE 5 MG
     Route: 048
     Dates: start: 20131031
  14. LYRICA [Concomitant]
     Active Substance: PREGABALIN
     Dosage: 25 MG AT DAILY DOSE
     Route: 048
  15. PREDNISOLONE. [Concomitant]
     Active Substance: PREDNISOLONE
     Dosage: DAILY DOSE 7.5 MG
     Route: 048
  16. PYDOXAL [Concomitant]
     Active Substance: PYRIDOXAL
     Dosage: 10 MG DAILY DOSE
     Route: 048
     Dates: start: 20131003
  17. ONEALFA [Concomitant]
     Active Substance: ALFACALCIDOL
     Dosage: 0.5 ?G
     Route: 048

REACTIONS (1)
  - Cellulitis [Recovered/Resolved]

NARRATIVE: CASE EVENT DATE: 20140707
